FAERS Safety Report 7670243-2 (Version None)
Quarter: 2011Q3

REPORT INFORMATION
  Report Type: 
  Country: None (occurrence: None)
  Receive Date: 20110809
  Receipt Date: 20110803
  Transmission Date: 20111222
  Serious: Yes (Hospitalization)
  Sender: FDA-Public Use
  Company Number: US-BRISTOL-MYERS SQUIBB COMPANY-15402472

PATIENT
  Age: 65 Year
  Sex: Female

DRUGS (25)
  1. COLACE [Concomitant]
     Indication: CONSTIPATION
     Dosage: 1DF:1-2 TABS
     Route: 048
     Dates: start: 20090101
  2. BENADRYL [Concomitant]
     Indication: PROPHYLAXIS
     Route: 042
     Dates: start: 20101027, end: 20101124
  3. COMPAZINE [Concomitant]
     Indication: INFUSION RELATED REACTION
     Route: 042
     Dates: start: 20101117, end: 20101117
  4. ASPIRIN [Concomitant]
     Route: 048
     Dates: start: 19950101
  5. LOVENOX [Concomitant]
     Indication: THROMBOSIS PROPHYLAXIS
     Route: 058
     Dates: start: 20101119, end: 20101121
  6. XL281 [Suspect]
     Indication: COLORECTAL CANCER METASTATIC
     Dosage: COURSE-1
     Route: 048
     Dates: start: 20101026
  7. BENADRYL [Concomitant]
     Indication: INFUSION RELATED REACTION
     Route: 042
     Dates: start: 20101027, end: 20101124
  8. DEMEROL [Concomitant]
     Indication: INFUSION RELATED REACTION
     Route: 042
     Dates: start: 20101117, end: 20101117
  9. PERCOCET [Concomitant]
     Indication: PAIN
     Dosage: 1DF:5/325MG
     Route: 048
     Dates: start: 20090101
  10. CLARITIN [Concomitant]
     Indication: SEASONAL ALLERGY
     Route: 048
     Dates: start: 20050101
  11. CLEOCIN HYDROCHLORIDE [Concomitant]
     Indication: RASH
     Route: 061
     Dates: start: 20101117, end: 20101223
  12. SODIUM CHLORIDE [Concomitant]
     Indication: INFUSION RELATED REACTION
     Dosage: 1DF:100CC 19NOV10:20NOV10:100CC 17NOV10:17NOV10 24NOV10:24NOV10:1 LIT
     Route: 042
     Dates: start: 20101117, end: 20101124
  13. MIRALAX [Concomitant]
     Indication: CONSTIPATION
     Route: 048
     Dates: start: 20101025
  14. ZINC [Concomitant]
     Dosage: 1DF:2 TABS
     Route: 048
     Dates: start: 20050101
  15. SODIUM CHLORIDE [Concomitant]
     Indication: PROPHYLAXIS
     Dosage: 1DF:100CC 19NOV10:20NOV10:100CC 17NOV10:17NOV10 24NOV10:24NOV10:1 LIT
     Route: 042
     Dates: start: 20101117, end: 20101124
  16. TYLENOL-500 [Concomitant]
     Indication: PROPHYLAXIS
     Dosage: ALSO TAKEN ON 27OCT10
     Route: 048
     Dates: start: 20101026, end: 20101124
  17. LEVAQUIN [Concomitant]
     Indication: URINARY TRACT INFECTION
     Dosage: ALSO TAKEN ON 20NOV10
     Route: 048
     Dates: start: 20101121, end: 20101127
  18. MS CONTIN [Concomitant]
     Indication: ABDOMINAL PAIN
     Dosage: 17OCT:20OCT10; 60 MG PM AND 30 MG AM 20OCT10-CONT
     Route: 048
     Dates: start: 20101017
  19. ALFALFA [Concomitant]
     Dosage: 1 DF = 6 TABS
     Route: 048
     Dates: start: 19900101
  20. CETUXIMAB [Suspect]
     Indication: COLORECTAL CANCER METASTATIC
     Dosage: 800MG:27-27OCT10.500MG:03NOV10-ONG
     Route: 042
     Dates: start: 20101027
  21. TYLENOL-500 [Concomitant]
     Indication: HEADACHE
     Dosage: ALSO TAKEN ON 27OCT10
     Route: 048
     Dates: start: 20101026, end: 20101124
  22. PHENAZOPYRIDINE HCL TAB [Concomitant]
     Indication: URINARY TRACT INFECTION
     Route: 048
     Dates: start: 20101110, end: 20101120
  23. SOLU-CORTEF [Concomitant]
     Indication: INFUSION RELATED REACTION
     Route: 042
     Dates: start: 20101117, end: 20101117
  24. CALCIUM + VITAMIN D [Concomitant]
     Dosage: 1DF:2 TABS
     Route: 048
     Dates: start: 20050101
  25. MAGNESIUM [Concomitant]
     Dosage: 1DF:2 TABS
     Route: 048
     Dates: start: 20050101

REACTIONS (2)
  - URINARY TRACT INFECTION [None]
  - HEMIPARESIS [None]
